FAERS Safety Report 6595879-1 (Version None)
Quarter: 2010Q1

REPORT INFORMATION
  Report Type: 
  Country: None (occurrence: None)
  Receive Date: 20100223
  Receipt Date: 20100210
  Transmission Date: 20100710
  Serious: Yes (Hospitalization)
  Sender: FDA-Public Use
  Company Number: US-ELI_LILLY_AND_COMPANY-US201002004272

PATIENT
  Age: 57 Year
  Sex: Male

DRUGS (4)
  1. ZYPREXA [Suspect]
     Indication: BIPOLAR DISORDER
     Dosage: 40 MG, EACH EVENING
     Dates: start: 20091201
  2. SEROQUEL [Concomitant]
  3. DEXEDRINE [Concomitant]
  4. KLONOPIN [Concomitant]

REACTIONS (7)
  - DRUG INEFFECTIVE [None]
  - HAEMORRHAGE SUBCUTANEOUS [None]
  - INSOMNIA [None]
  - LYMPHADENOPATHY [None]
  - OVERDOSE [None]
  - PRURITUS [None]
  - SUICIDAL IDEATION [None]
